FAERS Safety Report 15721221 (Version 1)
Quarter: 2018Q4

REPORT INFORMATION
  Report Type: Spontaneous
  Country: GB (occurrence: GB)
  Receive Date: 20181214
  Receipt Date: 20181214
  Transmission Date: 20190205
  Serious: Yes (Life-Threatening)
  Sender: FDA-Public Use
  Company Number: GB-ROCHE-2206601

PATIENT
  Age: 44 Year
  Sex: Female
  Weight: 89.2 kg

DRUGS (1)
  1. HERCEPTIN [Suspect]
     Active Substance: TRASTUZUMAB
     Indication: PRODUCT USED FOR UNKNOWN INDICATION
     Route: 058
     Dates: start: 20180815, end: 20181003

REACTIONS (2)
  - Swelling face [Recovered/Resolved]
  - Erythema [Not Recovered/Not Resolved]
